FAERS Safety Report 6098733-7 (Version None)
Quarter: 2009Q1

REPORT INFORMATION
  Report Type: 
  Country: None (occurrence: None)
  Receive Date: 20090302
  Receipt Date: 20090227
  Transmission Date: 20090719
  Serious: Yes (Hospitalization)
  Sender: FDA-Public Use
  Company Number: US-ASTRAZENECA-2009UW05414

PATIENT
  Age: 49 Year
  Sex: Female
  Weight: 59 kg

DRUGS (15)
  1. SEROQUEL [Suspect]
     Indication: BIPOLAR DISORDER
     Route: 048
     Dates: start: 20070201
  2. METHADONE HCL [Concomitant]
     Indication: PAIN
  3. FLEXERIL [Concomitant]
     Indication: PAIN
  4. PHENERGAN [Concomitant]
     Indication: ABDOMINAL DISCOMFORT
  5. PAXIL [Concomitant]
     Indication: BIPOLAR DISORDER
  6. KLONOPIN [Concomitant]
  7. CLARITIN-D [Concomitant]
     Indication: MULTIPLE ALLERGIES
  8. ZYRTEC [Concomitant]
     Indication: MULTIPLE ALLERGIES
  9. REMERON [Concomitant]
     Indication: SLEEP DISORDER
  10. GEMFIBROZIL [Concomitant]
     Indication: BLOOD CHOLESTEROL INCREASED
  11. METFORMIN HCL [Concomitant]
     Indication: DIABETES MELLITUS
  12. ACYCLOVIR [Concomitant]
  13. ATENOLOL [Concomitant]
     Indication: HYPERTENSION
  14. VISTERIL [Concomitant]
  15. VALIUM [Concomitant]

REACTIONS (1)
  - LOSS OF CONSCIOUSNESS [None]
